FAERS Safety Report 8816703 (Version 2)
Quarter: 2013Q3

REPORT INFORMATION
  Report Type: Spontaneous
  Country: US (occurrence: None)
  Receive Date: 20120928
  Receipt Date: 20130815
  Transmission Date: 20140515
  Serious: Yes (Hospitalization, Other)
  Sender: FDA-Public Use
  Company Number: ADR-2012-01181

PATIENT
  Age: 19 Year
  Sex: Male

DRUGS (2)
  1. BACLOFEN INTRATHECAL(BACLOFEN INJECTION) [Suspect]
     Indication: MUSCLE SPASTICITY
  2. BACLOFEN INTRATHECAL(BACLOFEN INJECTION) [Suspect]
     Indication: CEREBRAL PALSY

REACTIONS (6)
  - Muscle spasticity [None]
  - Device malfunction [None]
  - Muscle tightness [None]
  - Leukocytosis [None]
  - Neutrophil count increased [None]
  - Monocytosis [None]
